FAERS Safety Report 8738199 (Version 2)
Quarter: 2012Q4

REPORT INFORMATION
  Report Type: 
  Country: US (occurrence: US)
  Receive Date: 20120823
  Receipt Date: 20121017
  Transmission Date: 20130627
  Serious: Yes (Other)
  Sender: FDA-Public Use
  Company Number: US-PFIZER INC-2012204138

PATIENT
  Sex: Female

DRUGS (2)
  1. PRISTIQ [Suspect]
     Indication: MAJOR DEPRESSION
     Dosage: 50 mg, 1x/day
     Route: 048
     Dates: end: 2012
  2. PRISTIQ [Suspect]
     Dosage: 100 mg, UNK
     Route: 048
     Dates: start: 2012

REACTIONS (1)
  - Depression [Unknown]
